FAERS Safety Report 6431619-4 (Version None)
Quarter: 2009Q4

REPORT INFORMATION
  Report Type: 
  Country: None (occurrence: None)
  Receive Date: 20091106
  Receipt Date: 20091028
  Transmission Date: 20100525
  Serious: Yes (Other)
  Sender: FDA-Public Use
  Company Number: GB-ELI_LILLY_AND_COMPANY-GB200910007036

PATIENT
  Age: 47 Year
  Sex: Female

DRUGS (2)
  1. OLANZAPINE [Suspect]
     Indication: MOOD SWINGS
     Dosage: 15 MG, DAILY (1/D)
     Route: 048
     Dates: start: 20080101
  2. NARDIL [Concomitant]
     Indication: DEPRESSION
     Dosage: 60 MG, UNKNOWN
     Route: 048

REACTIONS (3)
  - DRUG INTERACTION [None]
  - SINUS BRADYCARDIA [None]
  - TACHYCARDIA [None]
